FAERS Safety Report 21766421 (Version 6)
Quarter: 2024Q1

REPORT INFORMATION
  Report Type: Spontaneous
  Country: US (occurrence: US)
  Receive Date: 20221222
  Receipt Date: 20240325
  Transmission Date: 20240409
  Serious: Yes (Other)
  Sender: FDA-Public Use
  Company Number: US-PFIZER INC-PV202200127476

PATIENT
  Age: 75 Year
  Sex: Female
  Weight: 86.27 kg

DRUGS (17)
  1. XELJANZ XR [Suspect]
     Active Substance: TOFACITINIB CITRATE
     Indication: Rheumatoid arthritis
     Dosage: 11 MG, 1X/DAY
     Route: 048
  2. DULOXETINE HYDROCHLORIDE [Concomitant]
     Active Substance: DULOXETINE HYDROCHLORIDE
     Indication: Arthralgia
     Dosage: 60 MG (CAPSULE DELAYED RELEASE), 1X/DAY
     Route: 048
  3. ROSUVASTATIN CALCIUM [Concomitant]
     Active Substance: ROSUVASTATIN CALCIUM
     Dosage: 5 MG, DAILY
     Route: 048
  4. METOPROLOL SUCCINATE [Concomitant]
     Active Substance: METOPROLOL SUCCINATE
     Dosage: 50 MG, AS DIRECTED
     Route: 048
  5. POTASSIUM CHLORIDE [Concomitant]
     Active Substance: POTASSIUM CHLORIDE
     Dosage: 10 MEQ (CAPSULE EXTENDED RELEASE), DAILY
     Route: 048
  6. HYDRALAZINE HCL [Concomitant]
     Active Substance: HYDRALAZINE HYDROCHLORIDE
     Dosage: 0.5 DF, 2X/DAY
     Route: 048
  7. VITAMIN C [Concomitant]
     Active Substance: ASCORBIC ACID
     Dosage: 1000 MG, DAILY
     Route: 048
  8. METHYLPREDNISOLONE [Concomitant]
     Active Substance: METHYLPREDNISOLONE
     Dosage: 4 MG, AS DIRECTED
     Route: 048
  9. LEFLUNOMIDE [Concomitant]
     Active Substance: LEFLUNOMIDE
     Dosage: 20 MG, 1X/DAY
     Route: 048
  10. LASIX [Concomitant]
     Active Substance: FUROSEMIDE
     Dosage: 40 MG, DAILY
     Route: 048
  11. ZINC [Concomitant]
     Active Substance: PYRITHIONE ZINC\ZINC\ZINC CHLORIDE
     Dosage: 50 MG, DAILY
     Route: 048
  12. LORATADINE [Concomitant]
     Active Substance: LORATADINE
     Dosage: 10 MG, DAILY
     Route: 048
  13. FERROUS SULFATE [Concomitant]
     Active Substance: FERROUS SULFATE
     Dosage: 325 MG (65 FE), DAILY
     Route: 048
  14. NORVASC [Concomitant]
     Active Substance: AMLODIPINE BESYLATE
     Dosage: 10 MG, DAILY
     Route: 048
  15. POTASSIUM [Concomitant]
     Active Substance: POTASSIUM
  16. POTASSIUM CHLORIDE [Concomitant]
     Active Substance: POTASSIUM CHLORIDE
  17. ARAVA [Concomitant]
     Active Substance: LEFLUNOMIDE
     Indication: Rheumatoid arthritis
     Dosage: 20 MG

REACTIONS (5)
  - Renal impairment [Unknown]
  - Condition aggravated [Unknown]
  - Bladder disorder [Unknown]
  - Condition aggravated [Recovered/Resolved]
  - Sciatica [Recovered/Resolved]

NARRATIVE: CASE EVENT DATE: 20240101
